FAERS Safety Report 7766673-0 (Version None)
Quarter: 2011Q3

REPORT INFORMATION
  Report Type: 
  Country: None (occurrence: None)
  Receive Date: 20110922
  Receipt Date: 20110914
  Transmission Date: 20111222
  Serious: Yes (Other)
  Sender: FDA-Public Use
  Company Number: JP-JNJFOC-20110900898

PATIENT
  Age: 68 Year
  Sex: Female

DRUGS (3)
  1. ADALAT [Concomitant]
     Route: 048
  2. TRAMADOL HYDROCHLORIDE/ACETAMINOPHEN [Suspect]
     Indication: PAIN
     Dosage: 1 PER DAY
     Route: 048
     Dates: start: 20110811
  3. PROCHLORPERAZINE [Concomitant]
     Indication: ANTIEMETIC SUPPORTIVE CARE
     Route: 048

REACTIONS (3)
  - CONFUSIONAL STATE [None]
  - ABNORMAL BEHAVIOUR [None]
  - SPEECH DISORDER [None]
